FAERS Safety Report 15886969 (Version 1)
Quarter: 2019Q1

REPORT INFORMATION
  Report Type: Spontaneous
  Country: US (occurrence: US)
  Receive Date: 20190130
  Receipt Date: 20190130
  Transmission Date: 20190417
  Serious: No
  Sender: FDA-Public Use
  Company Number: US-AUROBINDO-AUR-APU-2018-000708

PATIENT
  Sex: Male

DRUGS (2)
  1. CIPROFLOXACIN TABLETS USP 250 MG [Suspect]
     Active Substance: CIPROFLOXACIN
     Indication: PRODUCT USED FOR UNKNOWN INDICATION
     Dosage: 250 MILLIGRAM, TWO TIMES A DAY
     Route: 065
  2. DULOXETINE DELAYED-RELEASE CAPSULES USP 60 MG [Suspect]
     Active Substance: DULOXETINE HYDROCHLORIDE
     Indication: PRODUCT USED FOR UNKNOWN INDICATION
     Route: 065

REACTIONS (3)
  - Depression [Recovered/Resolved]
  - Hyperhidrosis [Recovered/Resolved]
  - Hypokinesia [Recovered/Resolved]
